FAERS Safety Report 9999654 (Version 1)
Quarter: 2014Q1

REPORT INFORMATION
  Report Type: Spontaneous
  Country: US (occurrence: US)
  Receive Date: 20140312
  Receipt Date: 20140312
  Transmission Date: 20141002
  Serious: No
  Sender: FDA-Public Use
  Company Number: US-009507513-1402USA012746

PATIENT
  Age: 40 Year
  Sex: Female

DRUGS (2)
  1. BETAMETHASONE DIPROPIONATE [Suspect]
     Indication: MATERNAL THERAPY TO ENHANCE FOETAL LUNG MATURITY
     Dosage: UNK
     Dates: start: 201402
  2. MAGNESIUM SULFATE [Suspect]
     Indication: UTERINE ATONY
     Dosage: UNK
     Dates: start: 201402

REACTIONS (1)
  - Exposure during pregnancy [Unknown]
